FAERS Safety Report 8777038 (Version 1)
Quarter: 2012Q4

REPORT INFORMATION
  Report Type: 
  Country: US (occurrence: US)
  Receive Date: 20120911
  Receipt Date: 20120911
  Transmission Date: 20130627
  Serious: No
  Sender: FDA-Public Use
  Company Number: US-ASTRAZENECA-2012SE61407

PATIENT
  Age: 54 Year
  Sex: Male
  Weight: 89.8 kg

DRUGS (2)
  1. SYMBICORT [Suspect]
     Dosage: 160/40.5 BID
     Route: 055
  2. SINGULAIR [Concomitant]
     Indication: ASTHMA

REACTIONS (3)
  - Pulmonary congestion [Unknown]
  - Incorrect storage of drug [Unknown]
  - Off label use [Unknown]
